FAERS Safety Report 5266561-8 (Version None)
Quarter: 2007Q1

REPORT INFORMATION
  Report Type: 
  Country: None (occurrence: None)
  Receive Date: 20070315
  Receipt Date: 20050714
  Transmission Date: 20070707
  Serious: Yes (Hospitalization)
  Sender: FDA-Public Use
  Company Number: ZW-BOEHRINGER INGELHEIM PHARMACEUTICALS, INC.-2005-UK-01296UK

PATIENT
  Sex: Male

DRUGS (3)
  1. NEVIRAPINE [Suspect]
     Indication: HIV INFECTION
     Dates: end: 20050311
  2. KALETRA [Suspect]
     Indication: HIV INFECTION
     Dates: end: 20050311
  3. DDI [Suspect]
     Indication: HIV INFECTION
     Dates: end: 20050311

REACTIONS (1)
  - HEPATIC CIRRHOSIS [None]
